FAERS Safety Report 6184610-X (Version None)
Quarter: 2009Q2

REPORT INFORMATION
  Report Type: 
  Country: None (occurrence: None)
  Receive Date: 20090508
  Receipt Date: 20090506
  Transmission Date: 20091009
  Serious: Yes (Hospitalization)
  Sender: FDA-Public Use
  Company Number: PHHO2006US03878

PATIENT
  Sex: Male

DRUGS (7)
  1. CIBADREX T29368+ [Suspect]
     Indication: HYPERTENSION
     Dosage: LEVEL 1
     Route: 048
     Dates: start: 20040409
  2. CIBADREX T29368+ [Suspect]
     Dosage: LEVEL 2
     Route: 048
  3. PLAVIX [Concomitant]
     Indication: CORONARY ARTERY DISEASE
  4. ASPIRIN [Concomitant]
     Indication: CORONARY ARTERY DISEASE
  5. TOPROL-XL [Concomitant]
     Indication: CORONARY ARTERY DISEASE
  6. LIPITOR [Concomitant]
     Indication: CORONARY ARTERY DISEASE
  7. QUININE [Concomitant]

REACTIONS (3)
  - BLOOD PRESSURE DECREASED [None]
  - DIZZINESS [None]
  - SYNCOPE [None]
